FAERS Safety Report 6411055-7 (Version None)
Quarter: 2009Q4

REPORT INFORMATION
  Report Type: 
  Country: None (occurrence: None)
  Receive Date: 20091021
  Receipt Date: 20091021
  Transmission Date: 20100525
  Serious: Yes (Disabling)
  Sender: FDA-Public Use
  Company Number: None

PATIENT
  Age: 53 Year
  Sex: Male

DRUGS (1)
  1. REGULAR INSULIN [Suspect]

REACTIONS (9)
  - ANXIETY [None]
  - BLOOD GLUCOSE DECREASED [None]
  - BLOOD GLUCOSE INCREASED [None]
  - ECONOMIC PROBLEM [None]
  - FACIAL PALSY [None]
  - HYPERHIDROSIS [None]
  - MUSCULAR WEAKNESS [None]
  - NERVOUSNESS [None]
  - TREATMENT NONCOMPLIANCE [None]
